FAERS Safety Report 5290123-X (Version None)
Quarter: 2007Q1

REPORT INFORMATION
  Report Type: 
  Country: None (occurrence: None)
  Receive Date: 20070330
  Receipt Date: 20070320
  Transmission Date: 20070707
  Serious: Yes (Life-Threatening, Other)
  Sender: FDA-Public Use
  Company Number: 07H-153-0312320-00

PATIENT
  Age: 76 Year
  Sex: Male
  Weight: 61 kg

DRUGS (6)
  1. PENTOTHAL [Suspect]
     Dosage: 10 ML, NOT REPORTED, EPIDURAL
     Route: 008
  2. PROPOFOL [Suspect]
     Indication: INDUCTION OF ANAESTHESIA
     Dosage: 0.4 MG/KG/MIN, NOT REPORTED, INTRAVENOUS INFUSION
     Route: 042
  3. LIDOCAINE 2% (LIDOCAINE) [Concomitant]
  4. FENTANYL [Concomitant]
  5. ROCURONIUM (ROCURONIUM) [Concomitant]
  6. DESFLURANE 6% IN 100% OXYGEN [Concomitant]

REACTIONS (3)
  - DRUG INTERACTION [None]
  - HYPOTENSION [None]
  - WRONG DRUG ADMINISTERED [None]
